FAERS Safety Report 10936416 (Version 5)
Quarter: 2015Q2

REPORT INFORMATION
  Report Type: Report from Study
  Country: BR (occurrence: BR)
  Receive Date: 20150321
  Receipt Date: 20150630
  Transmission Date: 20150821
  Serious: Yes (Death, Hospitalization)
  Sender: FDA-Public Use
  Company Number: BR-BIOGENIDEC-2015BI036578

PATIENT
  Age: 47 Year
  Sex: Female

DRUGS (1)
  1. AVONEX [Suspect]
     Active Substance: INTERFERON BETA-1A
     Indication: RELAPSING-REMITTING MULTIPLE SCLEROSIS
     Route: 030
     Dates: start: 20120328, end: 20150109

REACTIONS (19)
  - Coma [Fatal]
  - Septic shock [Unknown]
  - Labile blood pressure [Unknown]
  - Pyrexia [Unknown]
  - Seizure [Fatal]
  - Acute respiratory distress syndrome [Unknown]
  - Renal failure [Unknown]
  - Urinary incontinence [Unknown]
  - Encephalitis [Fatal]
  - Myocarditis [Unknown]
  - Hepatitis [Unknown]
  - Encephalitis autoimmune [Fatal]
  - Aspiration [Unknown]
  - Pancreatitis [Unknown]
  - Meningoencephalitis herpetic [Fatal]
  - Tachyarrhythmia [Unknown]
  - Multiple sclerosis relapse [Recovered/Resolved]
  - Hypothyroidism [Unknown]
  - Altered state of consciousness [Unknown]

NARRATIVE: CASE EVENT DATE: 2012
